FAERS Safety Report 9906629 (Version 1)
Quarter: 2014Q1

REPORT INFORMATION
  Report Type: Spontaneous
  Country: FR (occurrence: FR)
  Receive Date: 20140218
  Receipt Date: 20140218
  Transmission Date: 20141002
  Serious: Yes (Hospitalization)
  Sender: FDA-Public Use
  Company Number: FR-SA-2014SA016134

PATIENT
  Age: 59 Year
  Sex: Male

DRUGS (6)
  1. PLAVIX [Suspect]
     Indication: THROMBOANGIITIS OBLITERANS
     Route: 048
     Dates: end: 20131003
  2. PERINDOPRIL [Concomitant]
     Route: 048
  3. BISOPROLOL [Concomitant]
     Route: 048
  4. LODALES [Concomitant]
     Route: 048
  5. NOVOMIX [Concomitant]
     Route: 058
  6. ACTRAPID [Concomitant]
     Route: 058

REACTIONS (2)
  - Melaena [Recovered/Resolved]
  - Iron deficiency anaemia [Recovered/Resolved]
